FAERS Safety Report 10523794 (Version 1)
Quarter: 2014Q4

REPORT INFORMATION
  Report Type: Spontaneous
  Country: US (occurrence: None)
  Receive Date: 20141015
  Receipt Date: 20141015
  Transmission Date: 20150528
  Serious: Yes (Other)
  Sender: FDA-Public Use
  Company Number: None

PATIENT
  Age: 31 Year
  Sex: Female
  Weight: 122.47 kg

DRUGS (4)
  1. PROMETHAZINE THE GENERIC VERSION OF PHENERGAN [Suspect]
     Active Substance: PROMETHAZINE\PROMETHAZINE HYDROCHLORIDE
     Indication: VOMITING
     Dosage: 25 MG QTY: 20 EVERY 6 HOURS AS NEEDED BY MOUTH
     Route: 048
     Dates: start: 20140923, end: 20140927
  2. PROMETHAZINE THE GENERIC VERSION OF PHENERGAN [Suspect]
     Active Substance: PROMETHAZINE\PROMETHAZINE HYDROCHLORIDE
     Indication: NAUSEA
     Dosage: 25 MG QTY: 20 EVERY 6 HOURS AS NEEDED BY MOUTH
     Route: 048
     Dates: start: 20140923, end: 20140927
  3. PROMETHAZINE THE GENERIC VERSION OF PHENERGAN [Suspect]
     Active Substance: PROMETHAZINE\PROMETHAZINE HYDROCHLORIDE
     Indication: GASTROENTERITIS
     Dosage: 25 MG QTY: 20 EVERY 6 HOURS AS NEEDED BY MOUTH
     Route: 048
     Dates: start: 20140923, end: 20140927
  4. PROMETHAZINE THE GENERIC VERSION OF PHENERGAN [Suspect]
     Active Substance: PROMETHAZINE\PROMETHAZINE HYDROCHLORIDE
     Indication: GASTROENTERITIS VIRAL
     Dosage: 25 MG QTY: 20 EVERY 6 HOURS AS NEEDED BY MOUTH
     Route: 048
     Dates: start: 20140923, end: 20140927

REACTIONS (6)
  - Productive cough [None]
  - Nausea [None]
  - Abdominal pain upper [None]
  - Throat irritation [None]
  - Dysstasia [None]
  - Vomiting [None]

NARRATIVE: CASE EVENT DATE: 20140923
